FAERS Safety Report 13274748 (Version 2)
Quarter: 2017Q1

REPORT INFORMATION
  Report Type: Spontaneous
  Country: PE (occurrence: PE)
  Receive Date: 20170227
  Receipt Date: 20170302
  Transmission Date: 20170428
  Serious: Yes (Other)
  Sender: FDA-Public Use
  Company Number: PHHY2017PE028387

PATIENT
  Age: 52 Year
  Sex: Male
  Weight: 72 kg

DRUGS (2)
  1. DICLOFENAC [Suspect]
     Active Substance: DICLOFENAC
     Indication: DYSCHEZIA
     Dosage: UNK
     Route: 065
  2. LIDOCAINE. [Concomitant]
     Active Substance: LIDOCAINE
     Indication: DYSCHEZIA
     Dosage: UNK
     Route: 065

REACTIONS (18)
  - Histoplasmosis [Unknown]
  - Proctalgia [Unknown]
  - Hepatosplenomegaly [Unknown]
  - Nephrolithiasis [Unknown]
  - Pyrexia [Unknown]
  - Diarrhoea [Unknown]
  - Asthenia [Unknown]
  - Benign prostatic hyperplasia [Unknown]
  - Weight decreased [Unknown]
  - Neutrophil percentage increased [Unknown]
  - Hypotension [Unknown]
  - Diarrhoea haemorrhagic [Unknown]
  - Purulent discharge [Unknown]
  - Drug ineffective [Unknown]
  - Discomfort [Unknown]
  - Haemoglobin decreased [Unknown]
  - Hydronephrosis [Unknown]
  - Granuloma [Unknown]
